FAERS Safety Report 10648165 (Version 1)
Quarter: 2014Q4

REPORT INFORMATION
  Report Type: Spontaneous
  Country: US (occurrence: None)
  Receive Date: 20141211
  Receipt Date: 20141211
  Transmission Date: 20150529
  Serious: Yes (Disabling, Other)
  Sender: FDA-Public Use
  Company Number: None

PATIENT
  Age: 46 Year
  Sex: Female
  Weight: 104.33 kg

DRUGS (1)
  1. DIMETHYL FUMARATE [Suspect]
     Active Substance: DIMETHYL FUMARATE
     Indication: BLOOD PRESSURE
     Dosage: 1 ONCE DAILY TAKEN BY MOUTH
     Route: 048
     Dates: start: 20141002, end: 20141117

REACTIONS (7)
  - Dysarthria [None]
  - VIIth nerve paralysis [None]
  - Mental status changes [None]
  - Apparent death [None]
  - Confusional state [None]
  - Depression [None]
  - Amnesia [None]

NARRATIVE: CASE EVENT DATE: 20141111
